FAERS Safety Report 8377961-1 (Version None)
Quarter: 2012Q2

REPORT INFORMATION
  Report Type: 
  Country: None (occurrence: None)
  Receive Date: 20120522
  Receipt Date: 20120510
  Transmission Date: 20120825
  Serious: Yes (Hospitalization)
  Sender: FDA-Public Use
  Company Number: US-SHIRE-ALL1-2012-02374

PATIENT
  Sex: Female

DRUGS (2)
  1. KALBITOR [Concomitant]
     Indication: HEREDITARY ANGIOEDEMA
     Dosage: UNK, UNKNOWN
     Route: 065
  2. FIRAZYR [Suspect]
     Indication: HEREDITARY ANGIOEDEMA
     Dosage: 30 MG, OTHER (2 DOSES 8 HOURS APART)
     Route: 058
     Dates: start: 20120509, end: 20120510

REACTIONS (4)
  - PAIN [None]
  - EYE SWELLING [None]
  - HEADACHE [None]
  - ARTHRALGIA [None]
